FAERS Safety Report 9098195 (Version 1)
Quarter: 2013Q1

REPORT INFORMATION
  Report Type: Spontaneous
  Country: GB (occurrence: GB)
  Receive Date: 20130213
  Receipt Date: 20130213
  Transmission Date: 20140127
  Serious: Yes (Other)
  Sender: FDA-Public Use
  Company Number: PHFR2013GB001158

PATIENT
  Sex: Female

DRUGS (3)
  1. CLOZARIL [Suspect]
     Indication: SCHIZOPHRENIA
     Route: 048
     Dates: start: 20010701
  2. CLOZARIL [Suspect]
     Dosage: 500 MG, UNK
  3. CLOZARIL [Suspect]
     Dosage: 200 MG, UNK

REACTIONS (4)
  - Idiopathic thrombocytopenic purpura [Unknown]
  - Platelet count increased [Unknown]
  - Sedation [Unknown]
  - Antipsychotic drug level increased [Unknown]
